FAERS Safety Report 11598501 (Version 1)
Quarter: 2015Q3

REPORT INFORMATION
  Report Type: Spontaneous
  Country: US (occurrence: US)
  Receive Date: 20150916
  Receipt Date: 20150916
  Transmission Date: 20151125
  Serious: No
  Sender: FDA-Public Use
  Company Number: US-ELI_LILLY_AND_COMPANY-US200712003010

PATIENT
  Sex: Female

DRUGS (1)
  1. FORTEO [Suspect]
     Active Substance: TERIPARATIDE

REACTIONS (2)
  - Injection site irritation [Recovered/Resolved with Sequelae]
  - Injection site erythema [Recovering/Resolving]
